FAERS Safety Report 7202177-1 (Version None)
Quarter: 2010Q4

REPORT INFORMATION
  Report Type: 
  Country: None (occurrence: None)
  Receive Date: 20101229
  Receipt Date: 20101216
  Transmission Date: 20110411
  Serious: Yes (Hospitalization)
  Sender: FDA-Public Use
  Company Number: PHFR2010GB05380

PATIENT
  Sex: Male

DRUGS (1)
  1. CLOZARIL [Suspect]
     Indication: SCHIZOPHRENIA
     Route: 048
     Dates: start: 20101108, end: 20101112

REACTIONS (5)
  - DYSPNOEA [None]
  - LEARNING DISORDER [None]
  - MALAISE [None]
  - MENTAL DISORDER [None]
  - PNEUMONIA [None]
